FAERS Safety Report 5900108-5 (Version None)
Quarter: 2008Q3

REPORT INFORMATION
  Report Type: 
  Country: None (occurrence: None)
  Receive Date: 20080926
  Receipt Date: 20080923
  Transmission Date: 20090109
  Serious: Yes (Death)
  Sender: FDA-Public Use
  Company Number: US-RB-002528-08

PATIENT
  Sex: Male

DRUGS (2)
  1. SUBOXONE [Suspect]
     Route: 060
  2. WELLBUTRIN [Concomitant]
     Indication: DEPRESSION
     Dosage: DOSE UNKNOWN

REACTIONS (1)
  - COMPLETED SUICIDE [None]
